FAERS Safety Report 21133155 (Version 2)
Quarter: 2022Q3

REPORT INFORMATION
  Report Type: Spontaneous
  Country: CA (occurrence: CA)
  Receive Date: 20220726
  Receipt Date: 20220824
  Transmission Date: 20221026
  Serious: Yes (Other)
  Sender: FDA-Public Use
  Company Number: CA-AMERICAN REGENT INC-2022002115

PATIENT
  Age: 67 Year
  Sex: Female

DRUGS (3)
  1. VENOFER [Suspect]
     Active Substance: IRON SUCROSE
     Indication: Transferrin saturation abnormal
     Dosage: 300 MILLIGRAM MIXED IN 250 ML NORMAL SALINE
     Route: 050
     Dates: start: 20220311, end: 20220311
  2. VENOFER [Suspect]
     Active Substance: IRON SUCROSE
     Indication: Serum ferritin abnormal
  3. VENOFER [Suspect]
     Active Substance: IRON SUCROSE
     Indication: Haemoglobin abnormal

REACTIONS (4)
  - Erythema [Unknown]
  - Rash [Unknown]
  - Headache [Unknown]
  - Pruritus [Unknown]

NARRATIVE: CASE EVENT DATE: 20220311
